FAERS Safety Report 8312492-6 (Version None)
Quarter: 2012Q2

REPORT INFORMATION
  Report Type: 
  Country: None (occurrence: None)
  Receive Date: 20120425
  Receipt Date: 20120423
  Transmission Date: 20120825
  Serious: Yes (Hospitalization, Other)
  Sender: FDA-Public Use
  Company Number: US-MERCK-1111USA01288

PATIENT
  Age: 72 Year
  Sex: Female

DRUGS (6)
  1. FOSAMAX [Suspect]
     Indication: OSTEOPOROSIS
     Route: 048
     Dates: start: 20011001
  2. FOSAMAX [Suspect]
     Route: 048
  3. COZAAR [Concomitant]
     Indication: HYPERTENSION
     Route: 065
     Dates: start: 20030826
  4. ACCUPRIL [Concomitant]
     Indication: HYPERTENSION
     Route: 065
     Dates: start: 20010401
  5. VERAPAMIL [Concomitant]
     Indication: HYPERTENSION
     Route: 065
     Dates: start: 20010401
  6. VERAPAMIL EXTENDED-RELEASE [Concomitant]
     Route: 065

REACTIONS (20)
  - INTERVERTEBRAL DISC DEGENERATION [None]
  - IMPAIRED HEALING [None]
  - RENAL FAILURE ACUTE [None]
  - ANAEMIA [None]
  - DEPRESSION [None]
  - BONE DISORDER [None]
  - PNEUMONIA [None]
  - LACERATION [None]
  - TOOTH CROWDING [None]
  - DEVICE FAILURE [None]
  - TOOTH ABSCESS [None]
  - OSTEOSCLEROSIS [None]
  - OSTEONECROSIS OF JAW [None]
  - COMPRESSION FRACTURE [None]
  - ASTHENIA [None]
  - FALL [None]
  - DEHYDRATION [None]
  - TOOTH INFECTION [None]
  - OSTEOMYELITIS [None]
  - PROCEDURAL HAEMORRHAGE [None]
